FAERS Safety Report 5243036-3 (Version None)
Quarter: 2007Q1

REPORT INFORMATION
  Report Type: 
  Country: None (occurrence: None)
  Receive Date: 20070220
  Receipt Date: 20070220
  Transmission Date: 20070707
  Serious: Yes (Disabling, Other)
  Sender: FDA-Public Use
  Company Number: None

PATIENT
  Sex: Female
  Weight: 22.6799 kg

DRUGS (1)
  1. VIVAGLOBULIN 3.2 GMS [Suspect]
     Indication: IMMUNODEFICIENCY
     Dosage: 3.2 GMS WEEKLY SQ
     Route: 058
     Dates: start: 20070206, end: 20070212

REACTIONS (2)
  - CONDITION AGGRAVATED [None]
  - CONVULSION [None]
